FAERS Safety Report 25771499 (Version 2)
Quarter: 2025Q3

REPORT INFORMATION
  Report Type: Report from Study
  Country: EU (occurrence: EU)
  Receive Date: 20250908
  Receipt Date: 20250919
  Transmission Date: 20251020
  Serious: Yes (Death)
  Sender: AMNEAL
  Company Number: EU-AMNEAL PHARMACEUTICALS-2025-AMRX-03395

PATIENT
  Age: 60 Year
  Sex: Male
  Weight: 71 kg

DRUGS (8)
  1. ONGENTYS [Suspect]
     Active Substance: OPICAPONE
     Indication: Parkinson^s disease
     Dosage: 50 MILLIGRAM, QD
     Route: 065
     Dates: start: 20240705
  2. CARBIDOPA\LEVODOPA [Concomitant]
     Active Substance: CARBIDOPA\LEVODOPA
     Indication: Parkinson^s disease
     Dosage: 100/25 MG, 4X / DAY (TOTAL DAILY DOSE OF LEVODOPA: 500 MG)
     Route: 065
     Dates: start: 20240419
  3. ROPINIROLE [Concomitant]
     Active Substance: ROPINIROLE
     Indication: Parkinson^s disease
     Dosage: 12 MILLIGRAM, QD
     Route: 065
     Dates: start: 20200514
  4. RASAGILINE [Concomitant]
     Active Substance: RASAGILINE
     Indication: Parkinson^s disease
     Dosage: 1 MILLIGRAM, QD
     Route: 065
     Dates: start: 20180404
  5. CLONAZEPAM [Concomitant]
     Active Substance: CLONAZEPAM
     Indication: Rapid eye movement sleep behaviour disorder
     Route: 065
     Dates: start: 20210305
  6. EMPAGLIFLOZIN [Concomitant]
     Active Substance: EMPAGLIFLOZIN
     Indication: Disease risk factor
     Route: 065
     Dates: start: 20240129
  7. SINTROM [Concomitant]
     Active Substance: ACENOCOUMAROL
     Indication: Atrial fibrillation
     Route: 065
     Dates: start: 20230112
  8. FUROSEMIDE [Concomitant]
     Active Substance: FUROSEMIDE
     Indication: Hypertension
     Route: 065
     Dates: start: 20191001

REACTIONS (1)
  - Septic shock [Fatal]
